FAERS Safety Report 8865162 (Version 1)
Quarter: 2012Q4

REPORT INFORMATION
  Report Type: 
  Country: US (occurrence: US)
  Receive Date: 20121024
  Receipt Date: 20121024
  Transmission Date: 20130627
  Serious: No
  Sender: FDA-Public Use
  Company Number: US-AMGEN-USASP2012001238

PATIENT
  Age: 60 Year
  Sex: Female

DRUGS (10)
  1. ENBREL [Suspect]
     Indication: PSORIASIS
     Dosage: 50 mg, qwk
     Route: 058
  2. PLAQUENIL [Concomitant]
     Dosage: 200 mg, UNK
  3. AMBIEN [Concomitant]
     Dosage: 5 mg, UNK
  4. VALTREX [Concomitant]
     Dosage: 500 mg, UNK
  5. AMITRIPTYLIN [Concomitant]
     Dosage: 75 mg, UNK
  6. PREDNISONE [Concomitant]
     Dosage: 5 mg, UNK
  7. CALCIUM [Concomitant]
     Dosage: 500 DF, UNK
  8. VITAMIN D [Concomitant]
     Dosage: UNK
  9. FOLIC ACID [Concomitant]
     Dosage: 5 mg, UNK
  10. METHOTREXATE [Concomitant]
     Dosage: 1 g, UNK

REACTIONS (2)
  - Injection site pain [Unknown]
  - Injection site bruising [Unknown]
